FAERS Safety Report 24140878 (Version 1)
Quarter: 2024Q3

REPORT INFORMATION
  Report Type: Spontaneous
  Country: GB (occurrence: GB)
  Receive Date: 20240726
  Receipt Date: 20240726
  Transmission Date: 20241016
  Serious: Yes (Life-Threatening, Other)
  Sender: CSL BEHRING
  Company Number: None

PATIENT
  Age: 77 Year
  Sex: Male
  Weight: 82 kg

DRUGS (5)
  1. HUMAN IMMUNOGLOBULIN G [Suspect]
     Active Substance: HUMAN IMMUNOGLOBULIN G
     Indication: Myasthenia gravis crisis
     Dosage: 25 G, QW
     Route: 065
     Dates: start: 20240423, end: 20240423
  2. PREDNISOLONE [Concomitant]
     Active Substance: PREDNISOLONE
     Indication: Myasthenia gravis crisis
     Dosage: UNK
     Dates: start: 20240423
  3. LANSOPRAZOLE [Concomitant]
     Active Substance: LANSOPRAZOLE
     Dosage: UNK
     Dates: start: 20240423
  4. ALFENTANIL [Concomitant]
     Active Substance: ALFENTANIL
     Indication: Sedation
     Dosage: UNK
     Dates: start: 20240423
  5. PROPOFOL [Concomitant]
     Active Substance: PROPOFOL
     Indication: Sedation
     Dosage: UNK
     Dates: start: 20240423

REACTIONS (5)
  - Pulmonary embolism [Recovering/Resolving]
  - Deep vein thrombosis [Recovering/Resolving]
  - Myocardial infarction [Recovering/Resolving]
  - Cyanosis [Unknown]
  - Bradycardia [Unknown]

NARRATIVE: CASE EVENT DATE: 20240423
